FAERS Safety Report 5177598-1 (Version None)
Quarter: 2006Q4

REPORT INFORMATION
  Report Type: 
  Country: None (occurrence: None)
  Receive Date: 20061207
  Receipt Date: 20061125
  Transmission Date: 20070319
  Serious: Yes (Hospitalization, Other)
  Sender: FDA-Public Use
  Company Number: 2006079395

PATIENT
  Age: 49 Year
  Sex: Female
  Weight: 65.7716 kg

DRUGS (10)
  1. NEURONTIN [Suspect]
     Indication: NEURALGIA
     Dosage: 300 MG (300 MG, 1 IN 1 D)
     Dates: start: 20041101
  2. LYRICA [Suspect]
     Indication: NEURALGIA
     Dosage: 150 MG (75 MG, 2 IN 1 D)
     Dates: start: 20060613, end: 20060618
  3. WELLBUTRIN [Concomitant]
  4. HYDROCODONE BITARTRATE [Concomitant]
  5. FLEXERIL [Concomitant]
  6. ATIVAN [Concomitant]
  7. CELEBREX [Concomitant]
  8. ADDERALL 10 [Concomitant]
  9. CYMBALTA [Concomitant]
  10. MOTRIN [Concomitant]

REACTIONS (33)
  - ABDOMINAL PAIN UPPER [None]
  - ACUTE ABDOMEN [None]
  - ANGER [None]
  - APPENDICECTOMY [None]
  - ASTHENIA [None]
  - COMPLEX REGIONAL PAIN SYNDROME [None]
  - COORDINATION ABNORMAL [None]
  - CYANOSIS [None]
  - DEAFNESS [None]
  - DEPRESSION [None]
  - DRY SKIN [None]
  - FRUSTRATION [None]
  - GRIP STRENGTH DECREASED [None]
  - HYPERHIDROSIS [None]
  - HYPOAESTHESIA [None]
  - INITIAL INSOMNIA [None]
  - JOINT RANGE OF MOTION DECREASED [None]
  - LIVEDO RETICULARIS [None]
  - MIDDLE INSOMNIA [None]
  - MOOD ALTERED [None]
  - MOOD SWINGS [None]
  - MUSCLE SPASMS [None]
  - MYALGIA [None]
  - NAIL DISORDER [None]
  - NEURALGIA [None]
  - PAIN [None]
  - PAIN IN EXTREMITY [None]
  - PYREXIA [None]
  - RESPIRATORY RATE INCREASED [None]
  - SKIN DISCOLOURATION [None]
  - SKIN EXFOLIATION [None]
  - SOMNOLENCE [None]
  - SWELLING [None]
